FAERS Safety Report 5158918-0 (Version None)
Quarter: 2006Q4

REPORT INFORMATION
  Report Type: 
  Country: None (occurrence: None)
  Receive Date: 20061117
  Receipt Date: 20061114
  Transmission Date: 20070319
  Serious: Yes (Other)
  Sender: FDA-Public Use
  Company Number: HQWYE884723AUG06

PATIENT
  Age: 73 Year
  Sex: Female
  Weight: 63.56 kg

DRUGS (3)
  1. PROTONIX [Suspect]
     Indication: GASTROOESOPHAGEAL REFLUX DISEASE
     Dosage: 40 MG 1X PER 1 DAY; ORAL
     Route: 048
     Dates: start: 20051001, end: 20051201
  2. PAXIL [Concomitant]
  3. PRAVACHOL [Concomitant]

REACTIONS (4)
  - AMYOTROPHIC LATERAL SCLEROSIS [None]
  - CHOKING [None]
  - DYSARTHRIA [None]
  - DYSPHAGIA [None]
